FAERS Safety Report 5707579-8 (Version None)
Quarter: 2008Q2

REPORT INFORMATION
  Report Type: 
  Country: None (occurrence: None)
  Receive Date: 20080416
  Receipt Date: 20080404
  Transmission Date: 20081010
  Serious: Yes (Other)
  Sender: FDA-Public Use
  Company Number: US-PFIZER INC-2008011776

PATIENT
  Sex: Male
  Weight: 71.8 kg

DRUGS (6)
  1. CHANTIX [Suspect]
     Indication: SMOKING CESSATION THERAPY
     Route: 048
  2. COREG [Concomitant]
  3. LISINOPRIL [Concomitant]
  4. WARFARIN SODIUM [Concomitant]
  5. XANAX [Concomitant]
  6. LORCET [Concomitant]

REACTIONS (3)
  - HOMICIDAL IDEATION [None]
  - INSOMNIA [None]
  - NIGHTMARE [None]
